FAERS Safety Report 15037227 (Version 1)
Quarter: 2018Q2

REPORT INFORMATION
  Report Type: Spontaneous
  Country: FR (occurrence: FR)
  Receive Date: 20180620
  Receipt Date: 20180620
  Transmission Date: 20180711
  Serious: Yes (Other)
  Sender: FDA-Public Use
  Company Number: FR-TEVA-2018-FR-907704

PATIENT
  Age: 3 Year
  Sex: Female

DRUGS (3)
  1. NICARDIPINE (CHLORHYDRATE DE) [Suspect]
     Active Substance: NICARDIPINE HYDROCHLORIDE
     Indication: HYPERTENSION
     Dosage: CF COMMENTS
     Route: 048
     Dates: start: 20171010, end: 20180207
  2. MINIPRESS [Suspect]
     Active Substance: PRAZOSIN HYDROCHLORIDE
     Indication: HYPERTENSION
     Dosage: CF COMMENTS
     Route: 048
     Dates: start: 20171117
  3. ACEBUTOLOL BASE [Suspect]
     Active Substance: ACEBUTOLOL
     Indication: HYPERTENSION
     Dosage: CF COMMENTS
     Route: 048
     Dates: start: 20171222

REACTIONS (2)
  - Cholestasis [Recovered/Resolved]
  - Hepatic enzyme increased [Recovered/Resolved]

NARRATIVE: CASE EVENT DATE: 20180131
